FAERS Safety Report 24716865 (Version 1)
Quarter: 2024Q4

REPORT INFORMATION
  Report Type: Spontaneous
  Country: CN (occurrence: CN)
  Receive Date: 20241210
  Receipt Date: 20241210
  Transmission Date: 20250114
  Serious: Yes (Other)
  Sender: PFIZER
  Company Number: CN-PFIZER INC-PV202400158079

PATIENT
  Age: 43 Year
  Sex: Female
  Weight: 48 kg

DRUGS (5)
  1. PACLITAXEL [Suspect]
     Active Substance: PACLITAXEL
     Indication: Invasive ductal breast carcinoma
     Dosage: 220 MG, 1X/DAY
     Route: 041
     Dates: start: 20190326, end: 20190326
  2. PACLITAXEL [Suspect]
     Active Substance: PACLITAXEL
     Dosage: 240 MG
     Dates: start: 20190326, end: 20190326
  3. TRASTUZUMAB [Suspect]
     Active Substance: TRASTUZUMAB
     Indication: Invasive ductal breast carcinoma
     Dosage: 384 MG, 1X/DAY
     Route: 041
     Dates: start: 20190326, end: 20190326
  4. SODIUM CHLORIDE [Concomitant]
     Active Substance: SODIUM CHLORIDE
     Indication: Vehicle solution use
     Dosage: 250 ML, 1X/DAY
     Route: 041
     Dates: start: 20190326, end: 20190326
  5. DEXTROSE [Concomitant]
     Active Substance: DEXTROSE MONOHYDRATE
     Indication: Vehicle solution use
     Dosage: 250 ML, 1X/DAY
     Route: 041
     Dates: start: 20190326, end: 20190326

REACTIONS (2)
  - Drug-induced liver injury [Recovering/Resolving]
  - Blood triglycerides increased [Unknown]

NARRATIVE: CASE EVENT DATE: 20190101
